FAERS Safety Report 12859727 (Version 1)
Quarter: 2016Q4

REPORT INFORMATION
  Report Type: Spontaneous
  Country: US (occurrence: US)
  Receive Date: 20161018
  Receipt Date: 20161018
  Transmission Date: 20170207
  Serious: No
  Sender: FDA-Public Use
  Company Number: US-SHIRE-US201614993

PATIENT
  Sex: Female

DRUGS (1)
  1. ADDERALL XR [Suspect]
     Active Substance: AMPHETAMINE ASPARTATE\AMPHETAMINE SULFATE\DEXTROAMPHETAMINE SACCHARATE\DEXTROAMPHETAMINE SULFATE
     Indication: ATTENTION DEFICIT/HYPERACTIVITY DISORDER
     Dosage: (30 MG IN THE AM AND 30 MG IN THE AFTERNOON), 2X/DAY:BID
     Route: 048
     Dates: start: 201309

REACTIONS (8)
  - Asthenopia [Unknown]
  - Disturbance in attention [Unknown]
  - Dizziness [Unknown]
  - Nausea [Unknown]
  - Vertigo [Unknown]
  - Vision blurred [Unknown]
  - Prescribed overdose [Unknown]
  - Drug ineffective [Unknown]
